FAERS Safety Report 24410119 (Version 4)
Quarter: 2024Q4

REPORT INFORMATION
  Report Type: Report from Study
  Country: US (occurrence: US)
  Receive Date: 20241008
  Receipt Date: 20241212
  Transmission Date: 20250115
  Serious: Yes (Hospitalization)
  Sender: BIOGEN
  Company Number: US-BIOGEN-2024BI01285365

PATIENT
  Age: 24 Year
  Sex: Female

DRUGS (1)
  1. SKYCLARYS [Suspect]
     Active Substance: OMAVELOXOLONE
     Indication: Friedreich^s ataxia
     Route: 050
     Dates: start: 20240907

REACTIONS (4)
  - Pain [Unknown]
  - Constipation [Unknown]
  - Temperature intolerance [Unknown]
  - Anaemia [Unknown]

NARRATIVE: CASE EVENT DATE: 20240924
